FAERS Safety Report 4812457-2 (Version None)
Quarter: 2005Q4

REPORT INFORMATION
  Report Type: 
  Country: None (occurrence: None)
  Receive Date: 20051028
  Receipt Date: 20050201
  Transmission Date: 20060501
  Serious: No
  Sender: FDA-Public Use
  Company Number: US-GLAXOSMITHKLINE-A0543305A

PATIENT
  Sex: Female

DRUGS (2)
  1. ADVAIR DISKUS 100/50 [Suspect]
     Indication: PNEUMONIA
     Route: 055
     Dates: start: 20050115, end: 20050115
  2. CIPRO [Concomitant]

REACTIONS (3)
  - COUGH [None]
  - THROAT TIGHTNESS [None]
  - WHEEZING [None]
